FAERS Safety Report 11916534 (Version 2)
Quarter: 2016Q1

REPORT INFORMATION
  Report Type: Spontaneous
  Country: LV (occurrence: LV)
  Receive Date: 20160114
  Receipt Date: 20160121
  Transmission Date: 20160526
  Serious: Yes (Hospitalization, Other)
  Sender: FDA-Public Use
  Company Number: LV-JNJFOC-20160109217

PATIENT
  Age: 79 Year
  Sex: Female

DRUGS (1)
  1. XARELTO [Suspect]
     Active Substance: RIVAROXABAN
     Indication: SUBCUTANEOUS HAEMATOMA
     Route: 048
     Dates: start: 20160102, end: 20160103

REACTIONS (8)
  - Anaemia [Not Recovered/Not Resolved]
  - Haematoma [Not Recovered/Not Resolved]
  - Haematoma evacuation [Not Recovered/Not Resolved]
  - Intentional product misuse [Unknown]
  - Pulmonary oedema [Recovering/Resolving]
  - Hypotension [Recovering/Resolving]
  - Pneumonia [Not Recovered/Not Resolved]
  - Skin disorder [Not Recovered/Not Resolved]

NARRATIVE: CASE EVENT DATE: 201601
